FAERS Safety Report 10599720 (Version 2)
Quarter: 2015Q1

REPORT INFORMATION
  Report Type: Other
  Country: CN (occurrence: CN)
  Receive Date: 20141121
  Receipt Date: 20150218
  Transmission Date: 20150720
  Serious: Yes (Other)
  Sender: FDA-Public Use
  Company Number: ALCN2014CN006434

PATIENT

DRUGS (1)
  1. TOBRAMYCIN AND DEXAMETHASONE [Suspect]
     Active Substance: DEXAMETHASONE\TOBRAMYCIN
     Dosage: 1 DF, UNK
     Route: 047

REACTIONS (8)
  - Lacrimation increased [Recovered/Resolved]
  - Corneal oedema [Recovered/Resolved]
  - Punctate keratitis [Recovered/Resolved]
  - Corneal lesion [Recovered/Resolved]
  - Photophobia [Recovered/Resolved]
  - Corneal opacity [Recovered/Resolved]
  - Corneal infiltrates [Recovered/Resolved]
  - Vision blurred [Recovered/Resolved]
